FAERS Safety Report 8394235-3 (Version None)
Quarter: 2012Q2

REPORT INFORMATION
  Report Type: 
  Country: None (occurrence: None)
  Receive Date: 20120530
  Receipt Date: 20120522
  Transmission Date: 20120825
  Serious: Yes (Other)
  Sender: FDA-Public Use
  Company Number: CN-BRISTOL-MYERS SQUIBB COMPANY-16616922

PATIENT
  Age: 66 Year
  Sex: Male

DRUGS (1)
  1. ENTECAVIR [Suspect]
     Indication: HEPATITIS B VIRUS TEST
     Route: 048
     Dates: start: 20100101

REACTIONS (2)
  - LUNG ADENOCARCINOMA [None]
  - HEPATIC NEOPLASM MALIGNANT [None]
